FAERS Safety Report 25033263 (Version 3)
Quarter: 2025Q1

REPORT INFORMATION
  Report Type: Report from Study
  Country: ES (occurrence: ES)
  Receive Date: 20250303
  Receipt Date: 20250321
  Transmission Date: 20250408
  Serious: Yes (Life-Threatening, Hospitalization, Other)
  Sender: MYLAN
  Company Number: ES-CELLTRION INC.-2025ES004168

PATIENT
  Age: 59 Year
  Sex: Female
  Weight: 52.3 kg

DRUGS (21)
  1. LENALIDOMIDE [Suspect]
     Active Substance: LENALIDOMIDE
     Indication: Diffuse large B-cell lymphoma
     Dates: start: 20220706, end: 20221013
  2. LENALIDOMIDE [Suspect]
     Active Substance: LENALIDOMIDE
     Dates: start: 20221010
  3. LENALIDOMIDE [Suspect]
     Active Substance: LENALIDOMIDE
     Dosage: 20 MILLIGRAM, QD
     Dates: start: 20221031
  4. RITUXIMAB [Suspect]
     Active Substance: RITUXIMAB
     Indication: Diffuse large B-cell lymphoma
     Dosage: Q21D (EVERY 21 DAYS)
     Dates: start: 20220706, end: 20221017
  5. RITUXIMAB [Suspect]
     Active Substance: RITUXIMAB
     Dosage: EVERY 21 DAYS (LAST DOSE PRIOR TO THE ONSET OF SAE)
     Dates: start: 20221010
  6. TAFASITAMAB [Suspect]
     Active Substance: TAFASITAMAB
     Indication: Diffuse large B-cell lymphoma
     Dosage: 12 MG/KG, EVERY 21 DAYS (PLACEBO)
     Dates: start: 20220706, end: 20221017
  7. TAFASITAMAB [Suspect]
     Active Substance: TAFASITAMAB
     Dosage: 12 MG/KG, EVERY 21 DAYS (LAST DOSE PRIOR TO THE ONSET OF SAE) (PLACEBO)
     Dates: start: 20221010
  8. CYCLOPHOSPHAMIDE [Suspect]
     Active Substance: CYCLOPHOSPHAMIDE
     Indication: Diffuse large B-cell lymphoma
     Dosage: Q21D (EVERY 21 DAYS)
     Dates: start: 20220706, end: 20221017
  9. CYCLOPHOSPHAMIDE [Suspect]
     Active Substance: CYCLOPHOSPHAMIDE
     Dosage: Q21D, EVERY 21 DAYS (LAST DOSE PRIOR TO THE ONSET OF SAE)
     Dates: start: 20221010
  10. DOXORUBICIN [Suspect]
     Active Substance: DOXORUBICIN
     Indication: Diffuse large B-cell lymphoma
     Dosage: Q21D, EVERY 21 DAYS
     Dates: start: 20220706, end: 20221017
  11. DOXORUBICIN [Suspect]
     Active Substance: DOXORUBICIN
     Dosage: Q21D, EVERY 21 DAYS (LAST DOSE PRIOR TO THE ONSET OF SAE)
     Dates: start: 20221010
  12. VINCRISTINE [Suspect]
     Active Substance: VINCRISTINE
     Indication: Diffuse large B-cell lymphoma
     Dosage: Q21D, EVERY 21 DAYS
     Dates: start: 20220706, end: 20221017
  13. VINCRISTINE [Suspect]
     Active Substance: VINCRISTINE
     Dosage: Q21D, EVERY 21 DAYS (LAST DOSE PRIOR TO THE ONSET OF SAE)
     Dates: start: 20221010
  14. PREDNISOLONE [Suspect]
     Active Substance: PREDNISOLONE
     Indication: Diffuse large B-cell lymphoma
     Dosage: Q21D, EVERY 21 DAYS
     Dates: start: 20220706, end: 20221017
  15. PREDNISOLONE [Suspect]
     Active Substance: PREDNISOLONE
     Dosage: Q21D, EVERY 21 DAYS (LAST DOSE PRIOR TO THE ONSET OF SAE)
     Dates: start: 20221010
  16. FENTANYL [Concomitant]
     Active Substance: FENTANYL
  17. ALLOPURINOL [Concomitant]
     Active Substance: ALLOPURINOL
  18. OMEPRAZOLE SODIUM [Concomitant]
     Active Substance: OMEPRAZOLE SODIUM
  19. OMEPRAZOLE SODIUM [Concomitant]
     Active Substance: OMEPRAZOLE SODIUM
  20. FERROUS SULFATE [Concomitant]
     Active Substance: FERROUS SULFATE
  21. ENOXAPARIN SODIUM [Concomitant]
     Active Substance: ENOXAPARIN SODIUM

REACTIONS (2)
  - Febrile neutropenia [Recovered/Resolved]
  - Breakthrough COVID-19 [Unknown]

NARRATIVE: CASE EVENT DATE: 20221013
